FAERS Safety Report 9922155 (Version 1)
Quarter: 2014Q1

REPORT INFORMATION
  Report Type: Spontaneous
  Country: FR (occurrence: FR)
  Receive Date: 20140225
  Receipt Date: 20140225
  Transmission Date: 20141002
  Serious: Yes (Hospitalization)
  Sender: FDA-Public Use
  Company Number: FR-NOVOPROD-400967

PATIENT
  Age: 46 Year
  Sex: Female

DRUGS (5)
  1. NORDITROPIN [Suspect]
     Indication: HYPOPITUITARISM
     Dosage: 0.3 MG, QD
     Route: 058
     Dates: start: 20130221
  2. LEVOTHYROX [Concomitant]
     Dosage: UNKNOWN
     Route: 048
  3. HYDROCORTISONE [Concomitant]
     Route: 048
  4. CLIMASTON                          /01248201/ [Concomitant]
     Route: 048
  5. MINIRIN                            /00361901/ [Concomitant]
     Dosage: 2 DF, QD

REACTIONS (2)
  - Thrombocytosis [Not Recovered/Not Resolved]
  - Condition aggravated [Not Recovered/Not Resolved]
